FAERS Safety Report 5973126-9 (Version None)
Quarter: 2008Q4

REPORT INFORMATION
  Report Type: 
  Country: None (occurrence: None)
  Receive Date: 20081201
  Receipt Date: 20081121
  Transmission Date: 20090506
  Serious: Yes (Life-Threatening, Hospitalization, Other)
  Sender: FDA-Public Use
  Company Number: US-ABBOTT-08P-163-0481133-00

PATIENT
  Sex: Male
  Weight: 80 kg

DRUGS (15)
  1. HUMIRA [Suspect]
     Indication: RHEUMATOID ARTHRITIS
     Route: 058
     Dates: start: 20080820
  2. HUMIRA [Concomitant]
     Indication: RHEUMATOID ARTHRITIS
     Route: 058
     Dates: start: 20080903, end: 20081002
  3. DIPHENHYDRAMINE HYDROCHLORIDE [Concomitant]
     Indication: RHINITIS SEASONAL
     Dates: start: 20080416, end: 20080819
  4. DIPHENHYDRAMINE HYDROCHLORIDE [Concomitant]
     Dates: start: 20080820
  5. NICOTINIC ACID [Concomitant]
     Indication: HYPERLIPIDAEMIA
     Dates: start: 20070101
  6. INEGY [Concomitant]
     Indication: HYPERLIPIDAEMIA
     Dosage: 10/40 MG
     Dates: start: 20070101
  7. FISH OIL [Concomitant]
     Indication: MEDICAL DIET
     Dates: start: 20070101
  8. VACCINIUM MYRTILLUS [Concomitant]
     Indication: MEDICAL DIET
     Dates: start: 20070101
  9. ACETYLSALICYLIC ACID SRT [Concomitant]
     Indication: CARDIOVASCULAR EVENT PROPHYLAXIS
     Dates: start: 20070101
  10. ABATACEPT [Concomitant]
     Indication: RHEUMATOID ARTHRITIS
     Dates: start: 20020301, end: 20080301
  11. CENTRUM SILVER [Concomitant]
     Indication: VITAMIN SUPPLEMENTATION
     Dates: start: 20010101
  12. TRAMADOL HYDROCHLORIDE [Concomitant]
     Indication: ARTHRALGIA
     Dates: start: 20050401
  13. DICLOFENAC DIETHYLAMINE [Concomitant]
     Indication: ARTHRALGIA
     Dates: start: 20061030
  14. SIMVASTATIN [Concomitant]
     Indication: HYPERLIPIDAEMIA
     Dates: start: 20060905, end: 20070101
  15. METHOTREXATE [Concomitant]
     Indication: RHEUMATOID ARTHRITIS
     Dates: end: 20020101

REACTIONS (1)
  - MENINGITIS MENINGOCOCCAL [None]
